FAERS Safety Report 8490885-4 (Version None)
Quarter: 2012Q2

REPORT INFORMATION
  Report Type: 
  Country: None (occurrence: None)
  Receive Date: 20120628
  Receipt Date: 20120628
  Transmission Date: 20120825
  Serious: No
  Sender: FDA-Public Use
  Company Number: None

PATIENT
  Age: 76 Year
  Sex: Female
  Weight: 84.369 kg

DRUGS (1)
  1. LEVOFLOXACIN [Suspect]
     Indication: EXCORIATION
     Dosage: 1 TAB DAILY MOUTH
     Route: 048

REACTIONS (2)
  - RENAL IMPAIRMENT [None]
  - MALAISE [None]
